FAERS Safety Report 11779928 (Version 4)
Quarter: 2016Q1

REPORT INFORMATION
  Report Type: Spontaneous
  Country: US (occurrence: US)
  Receive Date: 20151125
  Receipt Date: 20160125
  Transmission Date: 20160525
  Serious: Yes (Other)
  Sender: FDA-Public Use
  Company Number: US-AMGEN-USASP2015123440

PATIENT
  Age: 50 Year
  Sex: Male
  Weight: 70.75 kg

DRUGS (7)
  1. OXYCODONE [Concomitant]
     Active Substance: OXYCODONE
     Indication: PAIN
     Dosage: 5 MG, AS NEEDED
     Route: 048
  2. NEPHROCAPS                         /07192601/ [Concomitant]
     Indication: RENAL FAILURE
     Dosage: UNK UNK, DAILY
     Route: 048
  3. ZANTAC [Concomitant]
     Active Substance: RANITIDINE HYDROCHLORIDE
     Indication: GASTROOESOPHAGEAL REFLUX DISEASE
     Dosage: 150 MG, DAILY
     Route: 048
  4. PROCRIT [Suspect]
     Active Substance: ERYTHROPOIETIN
     Indication: ANAEMIA
     Dosage: 20000 UNITS, WEEKLY
     Route: 065
     Dates: end: 201508
  5. CLONIDINE. [Concomitant]
     Active Substance: CLONIDINE
     Indication: ANXIETY
     Dosage: 0.1 MG, AS NEEDED
  6. MEDROL [Concomitant]
     Active Substance: METHYLPREDNISOLONE
     Indication: ADRENAL INSUFFICIENCY
     Dosage: 4 MG, DAILY
     Route: 048
  7. PHOSLO [Concomitant]
     Active Substance: CALCIUM ACETATE
     Indication: RENAL FAILURE
     Dosage: 667 MG, DAILY
     Route: 048

REACTIONS (3)
  - Aplastic anaemia [Unknown]
  - Drug ineffective [Unknown]
  - Dialysis [Unknown]
